FAERS Safety Report 15334459 (Version 4)
Quarter: 2018Q4

REPORT INFORMATION
  Report Type: Spontaneous
  Country: US (occurrence: US)
  Receive Date: 20180830
  Receipt Date: 20181108
  Transmission Date: 20190204
  Serious: No
  Sender: FDA-Public Use
  Company Number: US-PFIZER INC-2018347936

PATIENT
  Age: 57 Year
  Sex: Female
  Weight: 64 kg

DRUGS (5)
  1. XELJANZ [Concomitant]
     Active Substance: TOFACITINIB CITRATE
     Dosage: UNK
  2. LEFLUNOMIDE. [Concomitant]
     Active Substance: LEFLUNOMIDE
     Dosage: UNK
  3. LYRICA [Suspect]
     Active Substance: PREGABALIN
     Dosage: 125 MG DAILY (50 MG IN THE MORNING/AM AND 75 MG AT NIGHT/PM)
     Route: 048
  4. LYRICA [Suspect]
     Active Substance: PREGABALIN
     Dosage: 75 MG, 1X/DAY (AT NIGHT/PM)
     Route: 048
     Dates: start: 201808
  5. LYRICA [Suspect]
     Active Substance: PREGABALIN
     Indication: FIBROMYALGIA
     Dosage: 125 MG DAILY (50 MG IN THE MORNING/AM AND 75 MG AT NIGHT/PM)
     Route: 048

REACTIONS (3)
  - Drug effect incomplete [Unknown]
  - Underdose [Unknown]
  - Insomnia [Unknown]

NARRATIVE: CASE EVENT DATE: 201808
